FAERS Safety Report 5414896-8 (Version None)
Quarter: 2007Q3

REPORT INFORMATION
  Report Type: 
  Country: None (occurrence: None)
  Receive Date: 20070813
  Receipt Date: 20070803
  Transmission Date: 20080115
  Serious: Yes (Other)
  Sender: FDA-Public Use
  Company Number: 2006-07-0158

PATIENT
  Age: 40 Year
  Sex: Female

DRUGS (2)
  1. DESLORATADINE [Suspect]
     Indication: HYPERSENSITIVITY
     Dosage: 5 MG; PO; ; 2 MG; PO
     Route: 048
     Dates: start: 20060620, end: 20060101
  2. DESLORATADINE [Suspect]
     Indication: HYPERSENSITIVITY
     Dosage: 5 MG; PO; ; 2 MG; PO
     Route: 048
     Dates: start: 20060601, end: 20060701

REACTIONS (1)
  - AGGRESSION [None]
